FAERS Safety Report 6981919-4 (Version None)
Quarter: 2010Q3

REPORT INFORMATION
  Report Type: 
  Country: None (occurrence: None)
  Receive Date: 20100914
  Receipt Date: 20091017
  Transmission Date: 20110219
  Serious: No
  Sender: FDA-Public Use
  Company Number: US-PFIZER INC-2009285149

PATIENT
  Sex: Female
  Weight: 59 kg

DRUGS (3)
  1. LYRICA [Suspect]
     Indication: PAIN IN EXTREMITY
     Dosage: 50 MG, 1X/DAY
     Route: 048
     Dates: start: 20091001
  2. TRIMETHOPRIM [Concomitant]
     Indication: CYSTITIS
     Dosage: 100 MG, 1X/DAY
     Route: 048
     Dates: start: 20060101
  3. VITAMINS [Concomitant]
     Dosage: UNK
     Route: 048

REACTIONS (1)
  - VISION BLURRED [None]
